FAERS Safety Report 4388017-7 (Version None)
Quarter: 2004Q2

REPORT INFORMATION
  Report Type: 
  Country: None (occurrence: None)
  Receive Date: 20040607
  Receipt Date: 20040330
  Transmission Date: 20050107
  Serious: Yes (Other)
  Sender: FDA-Public Use
  Company Number: 363544

PATIENT

DRUGS (1)
  1. ACCUTANE [Suspect]
     Dosage: ORAL
     Route: 048
     Dates: end: 20040215

REACTIONS (2)
  - DRUG EXPOSURE DURING PREGNANCY [None]
  - NO ADVERSE EFFECT [None]
